FAERS Safety Report 21161085 (Version 2)
Quarter: 2022Q3

REPORT INFORMATION
  Report Type: Report from Study
  Country: US (occurrence: US)
  Receive Date: 20220802
  Receipt Date: 20220923
  Transmission Date: 20221027
  Serious: Yes (Hospitalization, Other)
  Sender: FDA-Public Use
  Company Number: US-Global Blood Therapeutics Inc-US-GBT-21-04365

PATIENT
  Age: 34 Year
  Sex: Female

DRUGS (9)
  1. OXBRYTA [Suspect]
     Active Substance: VOXELOTOR
     Indication: Anaemia
     Route: 048
     Dates: start: 20200203, end: 20200304
  2. HUMAN RED BLOOD CELL [Concomitant]
     Active Substance: HUMAN RED BLOOD CELL
     Indication: Product used for unknown indication
     Dosage: PACKED RED BLOOD CELLS (PRBC), 1 UNIT
     Dates: start: 20200210
  3. MS CONTIN [Concomitant]
     Active Substance: MORPHINE SULFATE
     Indication: Sickle cell disease
     Route: 048
     Dates: start: 20150405, end: 20201021
  4. MS CONTIN [Concomitant]
     Active Substance: MORPHINE SULFATE
     Indication: Sickle cell disease
     Route: 048
     Dates: start: 20200314, end: 20200314
  5. FOLIC ACID [Concomitant]
     Active Substance: FOLIC ACID
     Indication: Sickle cell disease
     Route: 048
     Dates: start: 20150304
  6. APIXABAN [Concomitant]
     Active Substance: APIXABAN
     Indication: Product used for unknown indication
     Route: 048
     Dates: start: 20150818
  7. CRIZANLIZUMAB [Concomitant]
     Active Substance: CRIZANLIZUMAB
     Indication: Sickle cell disease
     Route: 042
     Dates: start: 20200320, end: 20200320
  8. CRIZANLIZUMAB [Concomitant]
     Active Substance: CRIZANLIZUMAB
     Indication: Sickle cell disease
     Route: 042
     Dates: start: 20200416, end: 20200416
  9. CRIZANLIZUMAB [Concomitant]
     Active Substance: CRIZANLIZUMAB
     Indication: Sickle cell disease
     Route: 042
     Dates: start: 20200304, end: 20200304

REACTIONS (5)
  - Sickle cell anaemia with crisis [Recovered/Resolved]
  - Sickle cell anaemia with crisis [Recovered/Resolved]
  - Sickle cell anaemia with crisis [Recovered/Resolved]
  - Sickle cell anaemia with crisis [Recovered/Resolved]
  - Sickle cell anaemia with crisis [Unknown]

NARRATIVE: CASE EVENT DATE: 20200207
